FAERS Safety Report 8624241-2 (Version None)
Quarter: 2012Q3

REPORT INFORMATION
  Report Type: 
  Country: None (occurrence: None)
  Receive Date: 20120827
  Receipt Date: 20120816
  Transmission Date: 20120928
  Serious: Yes (Other)
  Sender: FDA-Public Use
  Company Number: US-ASTRAZENECA-2012SE39224

PATIENT
  Age: 68 Year
  Sex: Female
  Weight: 101 kg

DRUGS (4)
  1. AMLODIPINE [Concomitant]
     Indication: BLOOD PRESSURE ABNORMAL
     Dosage: 5/20 MG, QD
  2. PAXIL [Concomitant]
     Indication: DEPRESSION
  3. NEXIUM [Suspect]
     Indication: GASTROOESOPHAGEAL REFLUX DISEASE
     Route: 048
  4. CLOBETASOL PROPIONATE [Concomitant]
     Indication: DRY SKIN
     Route: 061

REACTIONS (8)
  - DRY SKIN [None]
  - PAIN IN EXTREMITY [None]
  - DRUG INEFFECTIVE [None]
  - BLADDER DISORDER [None]
  - GASTROOESOPHAGEAL REFLUX DISEASE [None]
  - CHEST PAIN [None]
  - VOMITING [None]
  - DRUG DOSE OMISSION [None]
